FAERS Safety Report 6429218-3 (Version None)
Quarter: 2009Q4

REPORT INFORMATION
  Report Type: 
  Country: None (occurrence: None)
  Receive Date: 20091105
  Receipt Date: 20091022
  Transmission Date: 20100525
  Serious: Yes (Other)
  Sender: FDA-Public Use
  Company Number: PHHY2009JP45869

PATIENT
  Sex: Male
  Weight: 45 kg

DRUGS (1)
  1. DIOVAN T30230+TAB+HY [Suspect]
     Dosage: 80 MG, ONCE DAILY
     Route: 048
     Dates: start: 20080305

REACTIONS (2)
  - BLOOD POTASSIUM INCREASED [None]
  - BLOOD URIC ACID INCREASED [None]
